FAERS Safety Report 16299547 (Version 1)
Quarter: 2019Q2

REPORT INFORMATION
  Report Type: Report from Study
  Country: IT (occurrence: IT)
  Receive Date: 20190510
  Receipt Date: 20190510
  Transmission Date: 20190711
  Serious: Yes (Hospitalization)
  Sender: FDA-Public Use
  Company Number: IT-ACCORD-126790

PATIENT
  Age: 58 Year
  Sex: Female

DRUGS (5)
  1. ESCITALOPRAM [Suspect]
     Active Substance: ESCITALOPRAM OXALATE
     Route: 048
     Dates: start: 20190220, end: 20190220
  2. DEPAKIN CHRONO [Concomitant]
     Active Substance: VALPROIC ACID
     Dosage: 500 MG PROLONGED-RELEASE TABLETS
  3. QUETIAPINE. [Suspect]
     Active Substance: QUETIAPINE
     Route: 048
     Dates: start: 20190220, end: 20190220
  4. LORAZEPAM. [Concomitant]
     Active Substance: LORAZEPAM
  5. CLONAZEPAM. [Concomitant]
     Active Substance: CLONAZEPAM

REACTIONS (5)
  - Drug abuse [Unknown]
  - Intentional self-injury [Unknown]
  - Hypokinesia [Recovering/Resolving]
  - Sopor [Recovering/Resolving]
  - Depressed level of consciousness [Recovering/Resolving]

NARRATIVE: CASE EVENT DATE: 20190220
